FAERS Safety Report 11208129 (Version 1)
Quarter: 2015Q2

REPORT INFORMATION
  Report Type: Spontaneous
  Country: US (occurrence: None)
  Receive Date: 20150619
  Receipt Date: 20150619
  Transmission Date: 20150821
  Serious: Yes (Hospitalization)
  Sender: FDA-Public Use
  Company Number: None

PATIENT
  Age: 67 Year
  Sex: Male
  Weight: 96.6 kg

DRUGS (14)
  1. KCL [Concomitant]
     Active Substance: POTASSIUM CHLORIDE
  2. MAG OX [Concomitant]
     Active Substance: MAGNESIUM OXIDE
  3. HUMALOG [Suspect]
     Active Substance: INSULIN LISPRO
     Indication: DIABETES MELLITUS
     Dosage: SSI AC HS
     Route: 058
  4. SYMBICORT [Concomitant]
     Active Substance: BUDESONIDE\FORMOTEROL FUMARATE DIHYDRATE
  5. PRADAXA [Concomitant]
     Active Substance: DABIGATRAN ETEXILATE MESYLATE
  6. ZOCOR [Concomitant]
     Active Substance: SIMVASTATIN
  7. HUMULIN NOS [Suspect]
     Active Substance: INSULIN HUMAN
     Indication: DIABETES MELLITUS
     Dosage: 45UNITS QAM SQ
     Route: 058
  8. ECOTRIN [Concomitant]
     Active Substance: ASPIRIN
  9. ALBUTEROL. [Concomitant]
     Active Substance: ALBUTEROL
  10. FOLBEE PLUS [Concomitant]
  11. NEURONTIN [Concomitant]
     Active Substance: GABAPENTIN
  12. TOPROL XL [Concomitant]
     Active Substance: METOPROLOL SUCCINATE
  13. FLOMAX [Concomitant]
     Active Substance: TAMSULOSIN HYDROCHLORIDE
  14. DEMADEX [Concomitant]
     Active Substance: TORSEMIDE

REACTIONS (4)
  - Sepsis [None]
  - Hypoglycaemia [None]
  - Syncope [None]
  - Pneumonia [None]

NARRATIVE: CASE EVENT DATE: 20141025
